FAERS Safety Report 6288046-2 (Version None)
Quarter: 2009Q3

REPORT INFORMATION
  Report Type: 
  Country: None (occurrence: None)
  Receive Date: 20090729
  Receipt Date: 20090721
  Transmission Date: 20100115
  Serious: Yes (Hospitalization)
  Sender: FDA-Public Use
  Company Number: JP-ASTRAZENECA-2009SE04066

PATIENT
  Sex: Female

DRUGS (4)
  1. ECARD COMBINATION TABLETS HD [Suspect]
     Indication: HYPERTENSION
     Route: 048
     Dates: start: 20090507, end: 20090616
  2. RIMATIL [Suspect]
     Route: 048
     Dates: end: 20090616
  3. DIGOXIN [Concomitant]
     Route: 065
  4. THYRADIN-S [Concomitant]
     Route: 048

REACTIONS (3)
  - ECZEMA [None]
  - GLOMERULONEPHRITIS RAPIDLY PROGRESSIVE [None]
  - PRURITUS [None]
